FAERS Safety Report 15716969 (Version 19)
Quarter: 2025Q2

REPORT INFORMATION
  Report Type: Spontaneous
  Country: US (occurrence: US)
  Receive Date: 20181213
  Receipt Date: 20250430
  Transmission Date: 20250716
  Serious: No
  Sender: PFIZER
  Company Number: US-PFIZER INC-2018508440

PATIENT
  Age: 52 Year
  Sex: Female

DRUGS (17)
  1. SOMAVERT [Suspect]
     Active Substance: PEGVISOMANT
     Indication: Acromegaly
     Dates: start: 2013, end: 2015
  2. SOMAVERT [Suspect]
     Active Substance: PEGVISOMANT
     Indication: Gigantism
     Dosage: 15 MG, DAILY
     Route: 058
     Dates: start: 20180516
  3. SOMAVERT [Suspect]
     Active Substance: PEGVISOMANT
     Dosage: 15 MG, DAILY (INJECT 15 MG UNDER THE SKIN (SUBCUTANEOUS INJECTION) DAILY)
     Route: 058
     Dates: start: 20200505
  4. SOMAVERT [Suspect]
     Active Substance: PEGVISOMANT
     Dosage: 15 MG, DAILY
     Route: 058
     Dates: start: 20200519
  5. SOMAVERT [Suspect]
     Active Substance: PEGVISOMANT
     Dosage: 15 MG, DAILY (INJECT 15 MG UNDER THE SKIN (SUBCUTANEOUS INJECTION) EVERY DAY)
     Route: 058
     Dates: start: 20200520
  6. EPINEPHRINE [Concomitant]
     Active Substance: EPINEPHRINE
  7. IBUPROFEN [Concomitant]
     Active Substance: IBUPROFEN
  8. OTEZLA [Concomitant]
     Active Substance: APREMILAST
  9. PREDNISONE [Concomitant]
     Active Substance: PREDNISONE
  10. LANREOTIDE [Concomitant]
     Active Substance: LANREOTIDE
  11. LANREOTIDE [Concomitant]
     Active Substance: LANREOTIDE
  12. VERAPAMIL [Concomitant]
     Active Substance: VERAPAMIL HYDROCHLORIDE
  13. UPTRAVI [Concomitant]
     Active Substance: SELEXIPAG
  14. UBRELVY [Concomitant]
     Active Substance: UBROGEPANT
  15. AMOXICILLIN\CLAVULANATE POTASSIUM [Concomitant]
     Active Substance: AMOXICILLIN\CLAVULANATE POTASSIUM
  16. ORENCIA [Concomitant]
     Active Substance: ABATACEPT
  17. TRAZODONE [Concomitant]
     Active Substance: TRAZODONE HYDROCHLORIDE

REACTIONS (6)
  - Condition aggravated [Recovering/Resolving]
  - Vomiting [Unknown]
  - Gastrointestinal disorder [Unknown]
  - Sensitivity to weather change [Unknown]
  - Pain [Unknown]
  - Product dose omission issue [Unknown]
